FAERS Safety Report 5235751-2 (Version None)
Quarter: 2007Q1

REPORT INFORMATION
  Report Type: 
  Country: None (occurrence: None)
  Receive Date: 20061208
  Receipt Date: 20051205
  Transmission Date: 20070707
  Serious: Yes (Other)
  Sender: FDA-Public Use
  Company Number: 2005UW18294

PATIENT
  Age: 86 Year
  Sex: Female
  Weight: 60.781 kg

DRUGS (6)
  1. CRESTOR [Suspect]
     Indication: BLOOD CHOLESTEROL INCREASED
     Dates: start: 20050401
  2. CELEBREX [Concomitant]
  3. PREVACID [Concomitant]
  4. ACTONEL [Concomitant]
  5. DETROL [Concomitant]
  6. VITAMINS [Concomitant]

REACTIONS (1)
  - ALOPECIA [None]
